FAERS Safety Report 9035351 (Version 1)
Quarter: 2013Q1

REPORT INFORMATION
  Report Type: Report from Study
  Country: US (occurrence: US)
  Receive Date: 20130129
  Receipt Date: 20130129
  Transmission Date: 20140127
  Serious: No
  Sender: FDA-Public Use
  Company Number: US-ABBOTT-12P-163-0894853-00

PATIENT
  Age: 56 None
  Sex: Female
  Weight: 72.64 kg

DRUGS (7)
  1. HUMIRA 40 MG/0.8 ML PEN [Suspect]
     Indication: PSORIATIC ARTHROPATHY
     Dates: start: 201005
  2. FLU SHOT [Suspect]
     Indication: INFLUENZA
     Dates: start: 20111125, end: 20111125
  3. FLU SHOT [Suspect]
     Indication: PROPHYLAXIS
  4. SYNTHROID [Concomitant]
     Indication: HYPOTHYROIDISM
  5. METHOTREXATE [Concomitant]
     Indication: PSORIATIC ARTHROPATHY
  6. FOLIC ACID [Concomitant]
     Indication: VITAMIN SUPPLEMENTATION
  7. TYLENOL [Concomitant]
     Indication: PAIN
     Dosage: AS NEEDED, RARELY

REACTIONS (9)
  - Pyrexia [Recovered/Resolved]
  - Upper respiratory tract congestion [Not Recovered/Not Resolved]
  - Chills [Recovered/Resolved]
  - Pain [Recovered/Resolved]
  - Sinusitis [Recovering/Resolving]
  - Sinus disorder [Not Recovered/Not Resolved]
  - Cough [Not Recovered/Not Resolved]
  - Asthenia [Not Recovered/Not Resolved]
  - Malaise [Not Recovered/Not Resolved]
